FAERS Safety Report 7169994-8 (Version None)
Quarter: 2010Q4

REPORT INFORMATION
  Report Type: 
  Country: None (occurrence: None)
  Receive Date: 20101217
  Receipt Date: 20101210
  Transmission Date: 20110411
  Serious: Yes (Other)
  Sender: FDA-Public Use
  Company Number: US-TYCO HEALTHCARE/MALLINCKRODT-T201002422

PATIENT
  Sex: Male
  Weight: 158.73 kg

DRUGS (5)
  1. EXALGO [Suspect]
     Indication: PAIN
     Dosage: 16 MG, QD
     Route: 048
     Dates: start: 20101117, end: 20101101
  2. PERCOCET [Concomitant]
     Indication: PAIN
     Dosage: 1-2 TAB Q6-8 HR
  3. CELEBREX [Concomitant]
     Indication: ANTIINFLAMMATORY THERAPY
     Dosage: 200 MG, BID
     Route: 048
  4. LIDODERM [Concomitant]
     Dosage: 12 HOURS ON, 12 HOURS OFF
     Route: 062
  5. OXYCONTIN [Concomitant]
     Indication: PAIN
     Dosage: 20 MG, BID
     Dates: end: 20101117

REACTIONS (2)
  - DYSPNOEA [None]
  - SLEEP APNOEA SYNDROME [None]
